FAERS Safety Report 16308887 (Version 1)
Quarter: 2019Q2

REPORT INFORMATION
  Report Type: Spontaneous
  Country: DE (occurrence: DE)
  Receive Date: 20190514
  Receipt Date: 20190514
  Transmission Date: 20190711
  Serious: Yes (Other)
  Sender: FDA-Public Use
  Company Number: DE-HIKMA PHARMACEUTICALS USA INC.-DE-H14001-17-04287

PATIENT
  Age: 68 Year
  Sex: Female

DRUGS (4)
  1. IMATINIB. [Suspect]
     Active Substance: IMATINIB MESYLATE
     Indication: CHRONIC MYELOID LEUKAEMIA
     Route: 065
  2. BOSUTINIB [Suspect]
     Active Substance: BOSUTINIB
     Indication: CHRONIC MYELOID LEUKAEMIA
     Route: 065
  3. HYDROXYUREA. [Concomitant]
     Active Substance: HYDROXYUREA
     Indication: CHRONIC MYELOID LEUKAEMIA
     Route: 065
  4. BOSUTINIB [Suspect]
     Active Substance: BOSUTINIB
     Route: 065

REACTIONS (8)
  - Therapeutic product effect decreased [Recovering/Resolving]
  - Philadelphia chromosome positive [Recovering/Resolving]
  - Electrocardiogram QT prolonged [Unknown]
  - Oedema peripheral [Unknown]
  - Nausea [Unknown]
  - Concomitant disease aggravated [Unknown]
  - Weight decreased [Unknown]
  - Diarrhoea [Recovering/Resolving]
